FAERS Safety Report 15929155 (Version 1)
Quarter: 2019Q1

REPORT INFORMATION
  Report Type: Report from Study
  Country: CA (occurrence: CA)
  Receive Date: 20190206
  Receipt Date: 20190206
  Transmission Date: 20190417
  Serious: Yes (Hospitalization)
  Sender: FDA-Public Use
  Company Number: CA-JNJFOC-20190119521

PATIENT
  Age: 22 Year
  Sex: Male
  Weight: 70 kg

DRUGS (1)
  1. REMICADE [Suspect]
     Active Substance: INFLIXIMAB
     Indication: CROHN^S DISEASE
     Dosage: STRENGTH = 100 MG
     Route: 042
     Dates: start: 20181130, end: 20181217

REACTIONS (4)
  - Product use issue [Unknown]
  - Intestinal perforation [Unknown]
  - Off label use [Unknown]
  - Intestinal resection [Unknown]

NARRATIVE: CASE EVENT DATE: 20181130
